FAERS Safety Report 25528786 (Version 1)
Quarter: 2025Q3

REPORT INFORMATION
  Report Type: Spontaneous
  Country: US (occurrence: US)
  Receive Date: 20250708
  Receipt Date: 20250708
  Transmission Date: 20251020
  Serious: Yes (Other)
  Sender: QILU PHARMACEUTICAL (HAINAN) CO., LTD.
  Company Number: US-QILU PHARMACEUTICAL (HAINAN) CO.  LTD.-QLH-000298-2024

PATIENT
  Age: 69 Year
  Sex: Female

DRUGS (4)
  1. OXALIPLATIN [Suspect]
     Active Substance: OXALIPLATIN
     Indication: Colon cancer stage IV
     Route: 042
     Dates: start: 202408
  2. OXALIPLATIN [Suspect]
     Active Substance: OXALIPLATIN
     Route: 042
     Dates: start: 202408
  3. FLUOROURACIL [Suspect]
     Active Substance: FLUOROURACIL
     Indication: Colon cancer stage IV
     Route: 065
     Dates: start: 202408
  4. LEUCOVORIN [Suspect]
     Active Substance: LEUCOVORIN\LEUCOVORIN CALCIUM
     Indication: Colon cancer stage IV
     Route: 065
     Dates: start: 202408

REACTIONS (1)
  - Anaphylactic reaction [Unknown]

NARRATIVE: CASE EVENT DATE: 20240801
